FAERS Safety Report 23456379 (Version 2)
Quarter: 2025Q1

REPORT INFORMATION
  Report Type: Report from Study
  Country: US (occurrence: US)
  Receive Date: 20240130
  Receipt Date: 20250312
  Transmission Date: 20250409
  Serious: No
  Sender: TAKEDA
  Company Number: US-TAKEDA-2024TUS008195

PATIENT
  Sex: Female
  Weight: 31 kg

DRUGS (4)
  1. LANADELUMAB [Suspect]
     Active Substance: LANADELUMAB
     Indication: Angioedema
     Dosage: 300 MILLIGRAM, Q2WEEKS
     Dates: start: 20240217
  2. LANADELUMAB [Suspect]
     Active Substance: LANADELUMAB
  3. LANADELUMAB [Suspect]
     Active Substance: LANADELUMAB
  4. FIRAZYR [Concomitant]
     Active Substance: ICATIBANT ACETATE

REACTIONS (4)
  - No adverse event [Unknown]
  - Product distribution issue [Unknown]
  - Inappropriate schedule of product administration [Unknown]
  - Product dose omission issue [Unknown]
